FAERS Safety Report 11056031 (Version 4)
Quarter: 2015Q3

REPORT INFORMATION
  Report Type: Spontaneous
  Country: US (occurrence: US)
  Receive Date: 20150422
  Receipt Date: 20150904
  Transmission Date: 20151125
  Serious: No
  Sender: FDA-Public Use
  Company Number: US-GLAXOSMITHKLINE-US2015052828

PATIENT
  Age: 19 Year
  Sex: Female

DRUGS (1)
  1. VENTOLIN HFA [Suspect]
     Active Substance: ALBUTEROL SULFATE
     Indication: ASTHMA
     Dosage: 2 PUFF(S), UNK
     Route: 055

REACTIONS (3)
  - Product quality issue [Unknown]
  - Device use error [Unknown]
  - Overdose [Unknown]

NARRATIVE: CASE EVENT DATE: 201504
